FAERS Safety Report 16290624 (Version 1)
Quarter: 2019Q2

REPORT INFORMATION
  Report Type: Spontaneous
  Country: US (occurrence: US)
  Receive Date: 20190508
  Receipt Date: 20190508
  Transmission Date: 20190711
  Serious: Yes (Other)
  Sender: FDA-Public Use
  Company Number: None

PATIENT
  Age: 41 Year
  Sex: Female

DRUGS (3)
  1. BUPRENORPHINE NALOXONE TABLETS [Concomitant]
     Active Substance: BUPRENORPHINE HYDROCHLORIDE\NALOXONE HYDROCHLORIDE
     Dates: start: 20180425, end: 20180914
  2. BUPRENORPHINE NALOXONE TABLETS [Concomitant]
     Active Substance: BUPRENORPHINE HYDROCHLORIDE\NALOXONE HYDROCHLORIDE
     Dates: end: 20190508
  3. BUPRENORPHINE/NALAXONE TABLETS [Suspect]
     Active Substance: BUPRENORPHINE HYDROCHLORIDE\NALOXONE HYDROCHLORIDE
     Indication: DRUG DEPENDENCE
     Route: 048
     Dates: start: 20190304, end: 20190508

REACTIONS (6)
  - Retching [None]
  - Product substitution issue [None]
  - Drug ineffective [None]
  - Drug level decreased [None]
  - Product taste abnormal [None]
  - Vomiting [None]

NARRATIVE: CASE EVENT DATE: 20190503
